FAERS Safety Report 8499709-2 (Version None)
Quarter: 2012Q3

REPORT INFORMATION
  Report Type: 
  Country: None (occurrence: None)
  Receive Date: 20120710
  Receipt Date: 20120628
  Transmission Date: 20120928
  Serious: Yes (Hospitalization)
  Sender: FDA-Public Use
  Company Number: JP-VERTEX PHARMACEUTICALS INC.-AE-2012-009792

PATIENT
  Age: 68 Year
  Sex: Male

DRUGS (9)
  1. KARY UNI [Concomitant]
     Route: 047
  2. TELAVIC (TELAPREVIR) [Suspect]
     Indication: HEPATITIS C
     Route: 048
     Dates: start: 20120508
  3. RIBAVIRIN [Concomitant]
     Indication: HEPATITIS C
     Route: 048
     Dates: start: 20120508, end: 20120527
  4. PEGINTERFERON ALFA-2B [Concomitant]
     Route: 058
     Dates: start: 20120522, end: 20120522
  5. RIBAVIRIN [Concomitant]
     Route: 048
     Dates: start: 20120601
  6. PEGINTERFERON ALFA-2B [Concomitant]
     Route: 058
     Dates: start: 20120528
  7. MIKELAN LA [Concomitant]
     Route: 047
  8. RIBAVIRIN [Concomitant]
     Route: 048
     Dates: start: 20120528, end: 20120531
  9. PEGINTERFERON ALFA-2B [Concomitant]
     Indication: HEPATITIS C
     Route: 058
     Dates: start: 20120508, end: 20120515

REACTIONS (1)
  - MALAISE [None]
